FAERS Safety Report 11902867 (Version 8)
Quarter: 2016Q4

REPORT INFORMATION
  Report Type: Spontaneous
  Country: GR (occurrence: GR)
  Receive Date: 20160108
  Receipt Date: 20161228
  Transmission Date: 20170206
  Serious: Yes (Hospitalization, Other)
  Sender: FDA-Public Use
  Company Number: GR-TAKEDA-2016MPI000078

PATIENT
  Age: 73 Year
  Sex: Male
  Weight: 72 kg

DRUGS (56)
  1. VELCADE [Suspect]
     Active Substance: BORTEZOMIB
     Dosage: 2.3 MG, UNK
     Route: 058
     Dates: start: 20150924
  2. TAZOCIN [Concomitant]
     Active Substance: PIPERACILLIN SODIUM\TAZOBACTAM SODIUM
     Dosage: UNK
     Route: 042
     Dates: start: 20151211
  3. GANFORT [Concomitant]
     Active Substance: BIMATOPROST\TIMOLOL
     Indication: GLAUCOMA
     Dosage: UNK, QD
     Route: 047
     Dates: start: 2005
  4. PREDNISONE. [Concomitant]
     Active Substance: PREDNISONE
     Dosage: 30 MG, UNK
     Route: 048
     Dates: start: 20150919, end: 20150919
  5. OLMESARTAN [Concomitant]
     Active Substance: OLMESARTAN
     Indication: HYPERTENSION
     Dosage: 10 MG, QD
     Route: 048
     Dates: start: 2005
  6. VELCADE [Suspect]
     Active Substance: BORTEZOMIB
     Dosage: 2.34 MG, UNK
     Route: 058
     Dates: start: 20151005, end: 20151008
  7. MELPHALAN [Suspect]
     Active Substance: MELPHALAN
     Indication: PLASMA CELL MYELOMA
     Dosage: 16 MG, QD
     Route: 048
     Dates: start: 20150914, end: 20150917
  8. MELPHALAN [Suspect]
     Active Substance: MELPHALAN
     Dosage: UNK
     Route: 048
     Dates: start: 20151027, end: 20151030
  9. PREDNISONE. [Concomitant]
     Active Substance: PREDNISONE
     Dosage: 50 MG, UNK
     Route: 048
     Dates: start: 20150918, end: 20150918
  10. BETAHISTINE [Concomitant]
     Active Substance: BETAHISTINE
     Indication: DEAFNESS
     Dosage: 16 MG, QD
     Route: 048
     Dates: start: 200511, end: 20150913
  11. LANTUS [Concomitant]
     Active Substance: INSULIN GLARGINE
     Indication: HYPERGLYCAEMIA
     Dosage: 8 IU, UNK
     Route: 058
     Dates: start: 20150914
  12. ZOLEDRONIC ACID [Concomitant]
     Active Substance: ZOLEDRONIC ACID
     Indication: PROPHYLAXIS
     Dosage: 4 MG, UNK
     Route: 042
     Dates: start: 20151015
  13. PRIMPERAN [Concomitant]
     Active Substance: METOCLOPRAMIDE HYDROCHLORIDE
     Dosage: 5 MG, TID
     Route: 042
     Dates: start: 20151204, end: 20151207
  14. PRIMPERAN [Concomitant]
     Active Substance: METOCLOPRAMIDE HYDROCHLORIDE
     Dosage: 5 MG, TID
     Route: 042
     Dates: start: 20151204, end: 20151207
  15. PREDNISOLONE. [Suspect]
     Active Substance: PREDNISOLONE
     Dosage: 60 MG, UNK
     Route: 048
     Dates: start: 20151027, end: 20151030
  16. VELCADE [Suspect]
     Active Substance: BORTEZOMIB
     Indication: PLASMA CELL MYELOMA
     Dosage: 2.3 MG, UNK
     Route: 058
     Dates: start: 20150914, end: 20150917
  17. TAZOCIN [Concomitant]
     Active Substance: PIPERACILLIN SODIUM\TAZOBACTAM SODIUM
     Indication: ILEUS
     Dosage: 4 MG, TID
     Route: 042
     Dates: start: 20151215, end: 20151228
  18. MACROGOL [Concomitant]
     Active Substance: POLYETHYLENE GLYCOLS
     Indication: ILEUS PARALYTIC
     Dosage: UNK, TID
     Route: 048
     Dates: start: 20151204
  19. LUMAREN [Concomitant]
     Dosage: UNK
     Route: 048
     Dates: start: 20151211, end: 20151215
  20. PRIMPERAN [Concomitant]
     Active Substance: METOCLOPRAMIDE HYDROCHLORIDE
     Indication: ILEUS
     Dosage: 5 MG, TID
     Route: 042
     Dates: start: 20151204, end: 20151207
  21. VELCADE [Suspect]
     Active Substance: BORTEZOMIB
     Dosage: 2.34 MG, UNK
     Route: 058
     Dates: start: 20151012
  22. VELCADE [Suspect]
     Active Substance: BORTEZOMIB
     Dosage: 2.34 MG, UNK
     Route: 058
     Dates: start: 20151015, end: 20151027
  23. VELCADE [Suspect]
     Active Substance: BORTEZOMIB
     Dosage: UNK
     Route: 058
     Dates: start: 20151123
  24. LAMIVUDINE. [Concomitant]
     Active Substance: LAMIVUDINE
     Indication: PROPHYLAXIS
     Dosage: 100 MG, QD
     Route: 048
     Dates: start: 20150914
  25. BACTRIMEL [Concomitant]
     Active Substance: SULFAMETHOXAZOLE\TRIMETHOPRIM
     Indication: PROPHYLAXIS
     Dosage: 960 MG, 3/WEEK
     Route: 048
     Dates: start: 20150914
  26. PREDNISONE. [Concomitant]
     Active Substance: PREDNISONE
     Indication: STEROID WITHDRAWAL SYNDROME
     Dosage: 15 MG, UNK
     Route: 048
     Dates: start: 20150920, end: 20150920
  27. MACROGOL [Concomitant]
     Active Substance: POLYETHYLENE GLYCOLS
     Dosage: UNK, TID
     Route: 048
     Dates: start: 20151211, end: 20151216
  28. ZOVIRAX [Concomitant]
     Active Substance: ACYCLOVIR
     Dosage: UNK
     Route: 065
     Dates: start: 20151204, end: 20151206
  29. VELCADE [Suspect]
     Active Substance: BORTEZOMIB
     Dosage: 2.34 MG, UNK
     Route: 058
     Dates: start: 20151008, end: 20151012
  30. METFORMIN [Concomitant]
     Active Substance: METFORMIN HYDROCHLORIDE
     Indication: TYPE 2 DIABETES MELLITUS
     Dosage: 1000 MG, UNK
     Route: 048
     Dates: start: 2005
  31. PHOSPHORIC ACID SODIUM [Concomitant]
     Indication: CONSTIPATION
     Dosage: UNK, TID
     Route: 054
     Dates: start: 20151202, end: 20151207
  32. CIPROFLOXACIN. [Concomitant]
     Active Substance: CIPROFLOXACIN
     Dosage: 400 MG, TID
     Route: 042
     Dates: start: 20151211, end: 20151228
  33. VELCADE [Suspect]
     Active Substance: BORTEZOMIB
     Dosage: 2.3 MG, UNK
     Route: 058
     Dates: start: 20150917, end: 20150921
  34. VELCADE [Suspect]
     Active Substance: BORTEZOMIB
     Dosage: 2.34 MG, UNK
     Route: 058
     Dates: start: 20151103, end: 20151116
  35. VELCADE [Suspect]
     Active Substance: BORTEZOMIB
     Dosage: 2.34 MG, UNK
     Route: 058
     Dates: start: 20151116, end: 20151123
  36. TAZOCIN [Concomitant]
     Active Substance: PIPERACILLIN SODIUM\TAZOBACTAM SODIUM
     Dosage: 4 MG, TID
     Route: 042
     Dates: start: 20151215, end: 20151228
  37. TAMSULOSIN [Concomitant]
     Active Substance: TAMSULOSIN
     Indication: BENIGN PROSTATIC HYPERPLASIA
     Dosage: 0.4 MG, QD
     Route: 048
     Dates: start: 2005
  38. VALACYCLOVIR [Concomitant]
     Active Substance: VALACYCLOVIR HYDROCHLORIDE
     Indication: PROPHYLAXIS
     Dosage: 500 MG, BID
     Route: 048
     Dates: start: 20150914
  39. MACROGOL [Concomitant]
     Active Substance: POLYETHYLENE GLYCOLS
     Dosage: UNK
     Route: 048
     Dates: start: 20151211, end: 20151216
  40. PRIMPERAN [Concomitant]
     Active Substance: METOCLOPRAMIDE HYDROCHLORIDE
     Indication: ILEUS PARALYTIC
     Dosage: 5 MG, TID
     Route: 042
     Dates: start: 20151211, end: 20151228
  41. PRIMPERAN [Concomitant]
     Active Substance: METOCLOPRAMIDE HYDROCHLORIDE
     Dosage: 5 MG, TID
     Route: 042
     Dates: start: 20151211, end: 20151228
  42. PREDNISOLONE. [Suspect]
     Active Substance: PREDNISOLONE
     Indication: PLASMA CELL MYELOMA
     Dosage: 90 MG, QID
     Route: 048
     Dates: start: 20150914, end: 20150917
  43. VELCADE [Suspect]
     Active Substance: BORTEZOMIB
     Dosage: 2.3 MG, UNK
     Route: 058
     Dates: start: 20150921, end: 20150924
  44. TAZOCIN [Concomitant]
     Active Substance: PIPERACILLIN SODIUM\TAZOBACTAM SODIUM
     Dosage: UNK
     Route: 042
     Dates: start: 20151211
  45. MACROGOL [Concomitant]
     Active Substance: POLYETHYLENE GLYCOLS
     Dosage: UNK, TID
     Route: 048
     Dates: start: 20151204
  46. LUMAREN [Concomitant]
     Dosage: 150 MG, UNK
     Route: 048
     Dates: start: 20150914, end: 20150920
  47. LUMAREN [Concomitant]
     Dosage: UNK
     Route: 048
     Dates: start: 20151204, end: 20151206
  48. PRIMPERAN [Concomitant]
     Active Substance: METOCLOPRAMIDE HYDROCHLORIDE
     Indication: PROPHYLAXIS
     Dosage: 5 MG, TID
     Route: 042
     Dates: start: 20151211, end: 20151228
  49. VELCADE [Suspect]
     Active Substance: BORTEZOMIB
     Dosage: 2.34 MG, UNK
     Route: 058
     Dates: start: 20151012, end: 20151015
  50. VELCADE [Suspect]
     Active Substance: BORTEZOMIB
     Dosage: 2.34 MG, UNK
     Route: 058
     Dates: start: 20151027, end: 20151103
  51. TAZOCIN [Concomitant]
     Active Substance: PIPERACILLIN SODIUM\TAZOBACTAM SODIUM
     Indication: ILEUS PARALYTIC
     Dosage: UNK
     Route: 042
     Dates: start: 20151211
  52. TAZOCIN [Concomitant]
     Active Substance: PIPERACILLIN SODIUM\TAZOBACTAM SODIUM
     Dosage: 4 MG, TID
     Route: 042
     Dates: start: 20151215
  53. EPOETIN ALFA [Concomitant]
     Active Substance: ERYTHROPOIETIN
     Indication: ANAEMIA
     Dosage: 40000 IU, 1/WEEK
     Route: 058
     Dates: start: 20150924
  54. LACTULOSE. [Concomitant]
     Active Substance: LACTULOSE
     Indication: CONSTIPATION
     Dosage: 10 MG, TID
     Route: 048
     Dates: start: 20151202, end: 20151204
  55. CIPROFLOXACIN. [Concomitant]
     Active Substance: CIPROFLOXACIN
     Indication: ILEUS PARALYTIC
     Dosage: 400 MG, TID
     Route: 042
     Dates: start: 20151204, end: 20151207
  56. LUMAREN [Concomitant]
     Indication: PROPHYLAXIS
     Dosage: UNK
     Route: 048

REACTIONS (10)
  - Hyperglycaemia [Unknown]
  - Supraventricular extrasystoles [Unknown]
  - Ileus [Recovered/Resolved]
  - Anaemia [Unknown]
  - Constipation [Unknown]
  - Ventricular extrasystoles [Unknown]
  - Pleural effusion [Unknown]
  - Ileus paralytic [Recovered/Resolved]
  - Steroid withdrawal syndrome [Unknown]
  - Lung infection [Unknown]

NARRATIVE: CASE EVENT DATE: 20150914
